FAERS Safety Report 19534158 (Version 1)
Quarter: 2021Q3

REPORT INFORMATION
  Report Type: Other
  Country: US (occurrence: US)
  Receive Date: 20210713
  Receipt Date: 20210713
  Transmission Date: 20211014
  Serious: Yes (Other)
  Sender: FDA-Public Use
  Company Number: US-APOTEX-2021AP019162

PATIENT
  Age: 61 Year
  Sex: Male

DRUGS (2)
  1. RANITIDINE TABLETS [Suspect]
     Active Substance: RANITIDINE HYDROCHLORIDE
     Indication: GASTROOESOPHAGEAL REFLUX DISEASE
     Dosage: OTHER (EVERY TIME HE WAS SYMPTOMATIC.)
     Route: 065
     Dates: start: 200401, end: 201904
  2. ZANTAC [Suspect]
     Active Substance: RANITIDINE HYDROCHLORIDE
     Indication: GASTROOESOPHAGEAL REFLUX DISEASE
     Dosage: DAILY (2 TIMES A DAY )
     Route: 065
     Dates: start: 199208, end: 200401

REACTIONS (4)
  - Hepatic cancer [Not Recovered/Not Resolved]
  - Chronic kidney disease [Unknown]
  - Pulmonary function test decreased [Unknown]
  - Oesophageal carcinoma [Not Recovered/Not Resolved]

NARRATIVE: CASE EVENT DATE: 20130420
